FAERS Safety Report 8275095-8 (Version None)
Quarter: 2012Q2

REPORT INFORMATION
  Report Type: 
  Country: None (occurrence: None)
  Receive Date: 20120411
  Receipt Date: 20120405
  Transmission Date: 20120825
  Serious: Yes (Other)
  Sender: FDA-Public Use
  Company Number: US-PFIZER INC-2012086732

PATIENT
  Sex: Female
  Weight: 72.562 kg

DRUGS (6)
  1. LYRICA [Suspect]
     Indication: PAIN
     Dosage: 75 MG, 2X/DAY
     Route: 048
     Dates: start: 20110630, end: 20110101
  2. VALIUM [Concomitant]
     Indication: PANIC ATTACK
     Dosage: 10MG TWO TO THREE TIMES A DAY AS NEEDED
  3. LYRICA [Suspect]
     Dosage: 150 MG, 2X/DAY
     Route: 048
     Dates: start: 20110101, end: 20120308
  4. VALIUM [Concomitant]
     Indication: NEUROPATHY PERIPHERAL
  5. LYRICA [Suspect]
     Indication: FIBROMYALGIA
     Dosage: 50 MG, 2X/DAY
     Route: 048
     Dates: start: 20091007, end: 20110630
  6. INDERAL [Concomitant]
     Indication: TREMOR
     Dosage: 40 MG

REACTIONS (6)
  - DEPRESSION [None]
  - DRUG RESISTANCE [None]
  - BIPOLAR II DISORDER [None]
  - PAIN IN EXTREMITY [None]
  - HEADACHE [None]
  - PAIN [None]
